FAERS Safety Report 9737047 (Version 2)
Quarter: 2013Q4

REPORT INFORMATION
  Report Type: Spontaneous
  Country: US (occurrence: US)
  Receive Date: 20131206
  Receipt Date: 20131206
  Transmission Date: 20140711
  Serious: No
  Sender: FDA-Public Use
  Company Number: US-GILEAD-2009-0023135

PATIENT
  Age: 75 Year
  Sex: Female

DRUGS (8)
  1. LETAIRIS [Suspect]
     Indication: PULMONARY ARTERIAL HYPERTENSION
  2. PRILOSEC [Concomitant]
  3. IPRATROPIUM [Concomitant]
  4. POTASSIUM [Concomitant]
  5. SIMVASTATIN [Concomitant]
  6. LEVOXYL [Concomitant]
  7. HYDROCHLOROTHIAZIDE [Concomitant]
  8. PREDNISONE [Concomitant]

REACTIONS (3)
  - Confusional state [Recovered/Resolved]
  - Oedema peripheral [Unknown]
  - Hyperhidrosis [Unknown]
